FAERS Safety Report 8962608 (Version 2)
Quarter: 2013Q1

REPORT INFORMATION
  Report Type: Spontaneous
  Country: FR (occurrence: FR)
  Receive Date: 20121214
  Receipt Date: 20130128
  Transmission Date: 20140127
  Serious: Yes (Life-Threatening)
  Sender: FDA-Public Use
  Company Number: FR-SANOFI-AVENTIS-2012SA088544

PATIENT
  Age: 80 Year
  Sex: Female

DRUGS (9)
  1. LASILIX [Suspect]
     Indication: PRODUCT USED FOR UNKNOWN INDICATION
     Route: 048
     Dates: end: 20121121
  2. FLUDEX [Suspect]
     Indication: PRODUCT USED FOR UNKNOWN INDICATION
     Route: 048
     Dates: end: 20121121
  3. NEBIVOLOL [Suspect]
     Indication: PRODUCT USED FOR UNKNOWN INDICATION
     Route: 048
     Dates: end: 20121121
  4. METFORMIN [Suspect]
     Indication: TYPE 2 DIABETES MELLITUS
     Route: 048
     Dates: end: 20121119
  5. PERINDOPRIL [Suspect]
     Indication: PRODUCT USED FOR UNKNOWN INDICATION
     Route: 048
     Dates: end: 20121121
  6. ZOCOR [Concomitant]
     Route: 065
  7. SINTROM [Concomitant]
     Route: 065
  8. CORDARONE [Concomitant]
     Route: 065
  9. ASPEGIC [Concomitant]
     Route: 065

REACTIONS (3)
  - Lactic acidosis [Recovered/Resolved]
  - Renal failure acute [Unknown]
  - Hyperkalaemia [Recovered/Resolved]
